FAERS Safety Report 10239448 (Version 1)
Quarter: 2014Q2

REPORT INFORMATION
  Report Type: Spontaneous
  Country: US (occurrence: US)
  Receive Date: 20140616
  Receipt Date: 20140616
  Transmission Date: 20141212
  Serious: No
  Sender: FDA-Public Use
  Company Number: US-PFIZER INC-2014161142

PATIENT
  Age: 39 Year
  Sex: Female
  Weight: 122 kg

DRUGS (5)
  1. NEURONTIN [Suspect]
     Indication: DIABETIC NEUROPATHY
     Dosage: 200 MG, 3X/DAY
     Route: 048
  2. NEURONTIN [Suspect]
     Dosage: 400 MG, UNK
     Route: 048
  3. NEURONTIN [Suspect]
     Dosage: 800 MG, 3X/DAY
     Route: 048
  4. NEURONTIN [Suspect]
     Dosage: 800 MG, 2X/DAY
     Route: 048
  5. LYRICA [Suspect]
     Indication: DIABETIC NEUROPATHY
     Dosage: UNK

REACTIONS (2)
  - Muscle twitching [Unknown]
  - Thyroid disorder [Recovered/Resolved]
